FAERS Safety Report 7422216-2 (Version None)
Quarter: 2011Q2

REPORT INFORMATION
  Report Type: 
  Country: None (occurrence: None)
  Receive Date: 20110418
  Receipt Date: 20110407
  Transmission Date: 20111010
  Serious: Yes (Other)
  Sender: FDA-Public Use
  Company Number: US-CEPHALON-2010001969

PATIENT
  Sex: Male
  Weight: 70 kg

DRUGS (6)
  1. ZOLOFT [Concomitant]
     Dates: start: 20100301
  2. PROVIGIL [Suspect]
     Indication: FATIGUE
     Route: 048
     Dates: start: 20100301
  3. MULTI-VITAMIN [Concomitant]
     Dates: start: 20100301
  4. PROVIGIL [Suspect]
     Route: 048
     Dates: start: 20100301
  5. PROVIGIL [Suspect]
     Route: 048
     Dates: start: 20100301
  6. LOVAZA [Concomitant]
     Dates: start: 20100301

REACTIONS (5)
  - INTENTIONAL DRUG MISUSE [None]
  - NOREPINEPHRINE INCREASED [None]
  - DRUG INEFFECTIVE FOR UNAPPROVED INDICATION [None]
  - HALLUCINATION [None]
  - FEELING ABNORMAL [None]
